FAERS Safety Report 9493891 (Version 1)
Quarter: 2013Q3

REPORT INFORMATION
  Report Type: Spontaneous
  Country: US (occurrence: US)
  Receive Date: 20130903
  Receipt Date: 20130903
  Transmission Date: 20140515
  Serious: Yes (Death, Other)
  Sender: FDA-Public Use
  Company Number: US-PFIZER INC-2013250969

PATIENT
  Age: 67 Year
  Sex: Male

DRUGS (1)
  1. SUTENT [Suspect]
     Dosage: 37.5 MG, CYCLIC, 2 WEEKS ON 1 WEEK OFF
     Dates: start: 201203

REACTIONS (2)
  - Renal failure [Fatal]
  - Cholecystitis infective [Fatal]
